FAERS Safety Report 20177546 (Version 6)
Quarter: 2023Q2

REPORT INFORMATION
  Report Type: Spontaneous
  Country: US (occurrence: US)
  Receive Date: 20211213
  Receipt Date: 20230510
  Transmission Date: 20230722
  Serious: Yes (Hospitalization, Other)
  Sender: FDA-Public Use
  Company Number: US-PFIZER INC-202101705404

PATIENT
  Age: 83 Year
  Sex: Male
  Weight: 81.19 kg

DRUGS (3)
  1. VYNDAMAX [Suspect]
     Active Substance: TAFAMIDIS
     Indication: Cardiac amyloidosis
     Dosage: 61 MG, 1X/DAY (1 CAPSULE BY MOUTH ONCE A DAY)
     Route: 048
     Dates: start: 202105
  2. VYNDAMAX [Suspect]
     Active Substance: TAFAMIDIS
     Dosage: 61 MG, 1X/DAY
     Route: 048
  3. LEVOTHYROXINE [Concomitant]
     Active Substance: LEVOTHYROXINE
     Indication: Thyroid therapy
     Dosage: 100 UG, DAILY
     Route: 048

REACTIONS (21)
  - Cardiac disorder [Unknown]
  - Unresponsive to stimuli [Recovered/Resolved]
  - COVID-19 [Recovered/Resolved]
  - Bladder obstruction [Unknown]
  - Intestinal obstruction [Unknown]
  - Fall [Unknown]
  - Humerus fracture [Unknown]
  - Shoulder fracture [Unknown]
  - Hyperthyroidism [Unknown]
  - Drug ineffective [Unknown]
  - Weight decreased [Unknown]
  - Pain in extremity [Not Recovered/Not Resolved]
  - Balance disorder [Not Recovered/Not Resolved]
  - Condition aggravated [Not Recovered/Not Resolved]
  - Fatigue [Unknown]
  - Chest pain [Unknown]
  - Abdominal pain upper [Unknown]
  - Heart rate increased [Unknown]
  - Feeling abnormal [Unknown]
  - Gait disturbance [Unknown]
  - Arthralgia [Not Recovered/Not Resolved]

NARRATIVE: CASE EVENT DATE: 20210101
